FAERS Safety Report 10628561 (Version 1)
Quarter: 2014Q4

REPORT INFORMATION
  Report Type: Spontaneous
  Country: US (occurrence: US)
  Receive Date: 20141205
  Receipt Date: 20141205
  Transmission Date: 20150529
  Serious: No
  Sender: FDA-Public Use
  Company Number: US-BRISTOL-MYERS SQUIBB COMPANY-20262796

PATIENT
  Age: 60 Year
  Sex: Female
  Weight: 61.22 kg

DRUGS (1)
  1. KOMBIGLYZE XR [Suspect]
     Active Substance: METFORMIN HYDROCHLORIDE\SAXAGLIPTIN HYDROCHLORIDE
     Indication: TYPE 2 DIABETES MELLITUS
     Dosage: 1DF:2.5MG/1000MG
     Dates: start: 201401

REACTIONS (4)
  - Diarrhoea [Unknown]
  - Anaemia [Unknown]
  - Headache [Unknown]
  - Blood testosterone increased [Recovered/Resolved]
